FAERS Safety Report 4329007-X (Version None)
Quarter: 2004Q1

REPORT INFORMATION
  Report Type: 
  Country: None (occurrence: None)
  Receive Date: 20040331
  Receipt Date: 20040331
  Transmission Date: 20041129
  Serious: Yes (Life-Threatening, Hospitalization)
  Sender: FDA-Public Use
  Company Number: None

PATIENT
  Sex: Female

DRUGS (6)
  1. DILANTIN [Suspect]
     Indication: CONVULSION
     Dosage: 500 MG (5 CAPS) PO QD
     Route: 048
     Dates: start: 20010101
  2. DARVOCET-N 100 [Suspect]
     Indication: PAIN
     Dosage: 100/650 Q 4-6 HOURS
     Dates: start: 20040211, end: 20040223
  3. ZONEGRAN [Concomitant]
  4. ZYPREXA [Concomitant]
  5. CELEBREX [Concomitant]
  6. RANITIDINE [Concomitant]

REACTIONS (3)
  - CONVULSION [None]
  - DRUG INTERACTION [None]
  - DRUG TOXICITY [None]
